FAERS Safety Report 10411421 (Version 2)
Quarter: 2014Q3

REPORT INFORMATION
  Report Type: Spontaneous
  Country: JP (occurrence: JP)
  Receive Date: 20140827
  Receipt Date: 20140908
  Transmission Date: 20150326
  Serious: No
  Sender: FDA-Public Use
  Company Number: JP-009507513-1408JPN013567

PATIENT
  Age: 37 Year
  Sex: Female

DRUGS (3)
  1. FOSAPREPITANT DIMEGLUMINE [Suspect]
     Active Substance: FOSAPREPITANT DIMEGLUMINE
     Indication: PROPHYLAXIS OF NAUSEA AND VOMITING
     Dosage: 150MG, ONCE A DAY
     Route: 041
     Dates: start: 20140807, end: 20140807
  2. ALOXI [Suspect]
     Active Substance: PALONOSETRON HYDROCHLORIDE
     Indication: PROPHYLAXIS OF NAUSEA AND VOMITING
     Dosage: 0.75MG PER DAY
     Route: 041
     Dates: start: 20140807, end: 20140807
  3. DEXART [Suspect]
     Active Substance: DEXAMETHASONE SODIUM PHOSPHATE
     Indication: PROPHYLAXIS OF NAUSEA AND VOMITING
     Dosage: 6.6MG PER DAY
     Route: 041
     Dates: start: 20140807, end: 20140807

REACTIONS (3)
  - Urticaria [Recovered/Resolved]
  - Anaphylactic reaction [Recovered/Resolved]
  - Pruritus [Recovered/Resolved]

NARRATIVE: CASE EVENT DATE: 20140807
